FAERS Safety Report 18259514 (Version 2)
Quarter: 2020Q3

REPORT INFORMATION
  Report Type: Report from Study
  Country: None (occurrence: US)
  Receive Date: 20200911
  Receipt Date: 20200918
  Transmission Date: 20201103
  Serious: Yes (Life-Threatening, Hospitalization)
  Sender: FDA-Public Use
  Company Number: US-ABBVIE-20P-163-3368866-00

PATIENT
  Age: 61 Year
  Sex: Male

DRUGS (36)
  1. VENETOCLAX. [Suspect]
     Active Substance: VENETOCLAX
     Indication: HAEMATOLOGICAL MALIGNANCY
     Route: 048
     Dates: start: 20200318
  2. ACETAMINOPHEN. [Concomitant]
     Active Substance: ACETAMINOPHEN
     Indication: PYREXIA
     Dosage: 650.0MG AS REQUIRED
     Route: 048
     Dates: start: 20190726
  3. DIPHENHYDRAMINE. [Concomitant]
     Active Substance: DIPHENHYDRAMINE
     Indication: PRURITUS
     Route: 042
     Dates: start: 20200327
  4. MAGNESIUM HYDROXIDE. [Concomitant]
     Active Substance: MAGNESIUM HYDROXIDE
     Indication: IMMUNOSUPPRESSION
     Dosage: 30.0ML ONCE/SINGLE ADMINISTRATION
     Route: 048
     Dates: start: 20190730
  5. VENETOCLAX. [Suspect]
     Active Substance: VENETOCLAX
     Indication: HAEMATOLOGICAL MALIGNANCY
     Route: 048
     Dates: start: 20200415, end: 20200507
  6. ACETAMINOPHEN. [Concomitant]
     Active Substance: ACETAMINOPHEN
     Indication: PREMEDICATION
     Dosage: 650.0MG AS REQUIRED
     Route: 048
     Dates: start: 20190726
  7. GUAIFENESIN?DEXTROMETHORPHAN [Concomitant]
     Indication: COUGH
     Dosage: 10.0ML AS REQUIRED
     Route: 048
     Dates: start: 20200222
  8. DIPHENHYDRAMINE. [Concomitant]
     Active Substance: DIPHENHYDRAMINE
     Indication: INSOMNIA
     Route: 042
     Dates: start: 20200303
  9. CEFDINIR. [Concomitant]
     Active Substance: CEFDINIR
     Indication: IMMUNOSUPPRESSION
     Route: 048
     Dates: start: 20200320, end: 20200326
  10. AZD?5991. [Concomitant]
     Active Substance: AZD-5991
     Indication: HAEMATOLOGICAL MALIGNANCY
     Dosage: 100.0MG ONCE/SINGLE ADMINISTRATION
     Route: 042
     Dates: start: 20200321
  11. VARENICLINE [Concomitant]
     Active Substance: VARENICLINE
     Indication: SMOKING CESSATION THERAPY
     Route: 048
     Dates: start: 20191125
  12. DIPHENHYDRAMINE. [Concomitant]
     Active Substance: DIPHENHYDRAMINE
     Indication: PRURITUS
     Route: 042
     Dates: start: 20200303
  13. MICAFUNGIN. [Concomitant]
     Active Substance: MICAFUNGIN SODIUM
     Indication: IMMUNOSUPPRESSION
     Route: 042
     Dates: start: 20200313, end: 20200401
  14. HYDROXYUREA. [Concomitant]
     Active Substance: HYDROXYUREA
     Indication: LEUKOCYTOSIS
     Route: 048
     Dates: start: 20200315, end: 20200319
  15. VENETOCLAX. [Suspect]
     Active Substance: VENETOCLAX
     Indication: HAEMATOLOGICAL MALIGNANCY
     Route: 048
     Dates: start: 20200402, end: 20200414
  16. AZD?5991. [Concomitant]
     Active Substance: AZD-5991
     Indication: HAEMATOLOGICAL MALIGNANCY
     Dosage: 150.0MG ONCE/SINGLE ADMINISTRATION
     Route: 042
     Dates: start: 20200401
  17. AZD?5991. [Concomitant]
     Active Substance: AZD-5991
     Indication: HAEMATOLOGICAL MALIGNANCY
     Dosage: 150.0MG ONCE/SINGLE ADMINISTRATION
     Route: 042
     Dates: start: 20200415
  18. AZD?5991. [Concomitant]
     Active Substance: AZD-5991
     Indication: HAEMATOLOGICAL MALIGNANCY
     Dosage: 150.0MG ONCE/SINGLE ADMINISTRATION
     Route: 042
     Dates: start: 20200422
  19. ACYCLOVIR. [Concomitant]
     Active Substance: ACYCLOVIR
     Indication: PROPHYLAXIS
     Route: 048
     Dates: start: 20190728
  20. SENNA [Concomitant]
     Active Substance: SENNA LEAF\SENNOSIDES\SENNOSIDES A AND B
     Indication: CONSTIPATION
     Dosage: 17.5MG ONCE/SINGLE ADMINISTRATION
     Route: 048
     Dates: start: 20190728
  21. DIPHENHYDRAMINE. [Concomitant]
     Active Substance: DIPHENHYDRAMINE
     Indication: INSOMNIA
     Route: 042
     Dates: start: 20200327
  22. MAGNESIUM HYDROXIDE. [Concomitant]
     Active Substance: MAGNESIUM HYDROXIDE
     Indication: IMMUNOSUPPRESSION
     Dosage: 30.0ML ONCE/SINGLE ADMINISTRATION
     Route: 048
     Dates: start: 20190728
  23. VENETOCLAX. [Suspect]
     Active Substance: VENETOCLAX
     Indication: HAEMATOLOGICAL MALIGNANCY
     Route: 048
     Dates: start: 20200319, end: 20200401
  24. AZD?5991. [Concomitant]
     Active Substance: AZD-5991
     Indication: HAEMATOLOGICAL MALIGNANCY
     Dosage: 150.0MG ONCE/SINGLE ADMINISTRATION
     Route: 042
     Dates: start: 20200408
  25. DIPHENHYDRAMINE. [Concomitant]
     Active Substance: DIPHENHYDRAMINE
     Indication: PREMEDICATION
     Route: 042
     Dates: start: 20200327
  26. MENTHOL. [Concomitant]
     Active Substance: MENTHOL
     Indication: COUGH
     Dosage: 1 LOZENGE
     Route: 048
     Dates: start: 20200314, end: 20200325
  27. AZD?5991. [Concomitant]
     Active Substance: AZD-5991
     Indication: HAEMATOLOGICAL MALIGNANCY
     Dosage: 150.0MG ONCE/SINGLE ADMINISTRATION
     Route: 042
     Dates: start: 20200325
  28. SEVELAMER CARBONATE. [Concomitant]
     Active Substance: SEVELAMER CARBONATE
     Indication: PHOSPHORUS METABOLISM DISORDER
     Route: 048
     Dates: start: 20200315, end: 20200316
  29. DIPHENHYDRAMINE. [Concomitant]
     Active Substance: DIPHENHYDRAMINE
     Indication: PREMEDICATION
     Route: 042
     Dates: start: 20200303
  30. SEVELAMER CARBONATE. [Concomitant]
     Active Substance: SEVELAMER CARBONATE
     Indication: PHOSPHORUS METABOLISM DISORDER
     Route: 048
     Dates: start: 20200304, end: 20200315
  31. ALLOPURINOL. [Concomitant]
     Active Substance: ALLOPURINOL
     Indication: PROPHYLAXIS
     Route: 048
     Dates: start: 20200222, end: 20200302
  32. ACETAMINOPHEN. [Concomitant]
     Active Substance: ACETAMINOPHEN
     Indication: PAIN
     Dosage: 650.0MG AS REQUIRED
     Route: 048
     Dates: start: 20190726
  33. DOCUSATE SODIUM. [Concomitant]
     Active Substance: DOCUSATE SODIUM
     Indication: CONSTIPATION
     Route: 048
     Dates: start: 20190728
  34. QUETIAPINE. [Concomitant]
     Active Substance: QUETIAPINE
     Indication: INSOMNIA
     Route: 048
     Dates: start: 20190911
  35. LEVOFLOXACIN. [Concomitant]
     Active Substance: LEVOFLOXACIN
     Indication: IMMUNOSUPPRESSION
     Route: 048
     Dates: start: 20200220, end: 20200319
  36. MELATONIN [Concomitant]
     Active Substance: MELATONIN
     Indication: INSOMNIA
     Route: 048
     Dates: start: 20200313, end: 20200325

REACTIONS (2)
  - Sepsis [Recovered/Resolved]
  - Pneumonia [Recovered/Resolved]

NARRATIVE: CASE EVENT DATE: 20200326
